FAERS Safety Report 23510694 (Version 2)
Quarter: 2024Q2

REPORT INFORMATION
  Report Type: Report from Study
  Country: US (occurrence: US)
  Receive Date: 20240211
  Receipt Date: 20240630
  Transmission Date: 20240716
  Serious: Yes (Death, Hospitalization, Other)
  Sender: FDA-Public Use
  Company Number: US-ABBVIE-5629562

PATIENT
  Sex: Female

DRUGS (1)
  1. HUMIRA [Suspect]
     Active Substance: ADALIMUMAB
     Indication: Product used for unknown indication
     Dosage: CITRATE FREE.?FORM STRENGTH: 40 MILLIGRAM.
     Route: 058

REACTIONS (4)
  - Gastrointestinal carcinoma [Fatal]
  - Influenza [Recovering/Resolving]
  - Pain [Unknown]
  - Coma [Recovering/Resolving]
